FAERS Safety Report 4657448-X (Version None)
Quarter: 2005Q2

REPORT INFORMATION
  Report Type: 
  Country: None (occurrence: None)
  Receive Date: 20050506
  Receipt Date: 20050429
  Transmission Date: 20051028
  Serious: No
  Sender: FDA-Public Use
  Company Number: 05H-163-0298312-00

PATIENT
  Age: 75 Year
  Sex: Male

DRUGS (11)
  1. DEXTRAN 40 INJ [Suspect]
     Indication: COAGULOPATHY
     Dosage: 50 CC, PER HOUR, INTRAVENOUS
     Route: 042
     Dates: start: 20050405, end: 20050405
  2. DEXTRAN 40 10% IN SODIUM CHLORIDE 0.9% [Suspect]
  3. ASASANTIN [Concomitant]
  4. ROSIGLITAZONE MALEATE [Concomitant]
  5. OXYBUTYNIN [Concomitant]
  6. TRICHLOR [Concomitant]
  7. FUROSEMIDE [Concomitant]
  8. ZIPRASIDONE HYDROCHLORIDE [Concomitant]
  9. PANTOPRAZOLE SODIUM [Concomitant]
  10. POTASSIUM CHLORIDE [Concomitant]
  11. NAMENDA [Concomitant]

REACTIONS (7)
  - AORTIC DISSECTION [None]
  - BACK PAIN [None]
  - DYSPNOEA [None]
  - ERYTHEMA [None]
  - HYPERSENSITIVITY [None]
  - INFUSION RELATED REACTION [None]
  - SPEECH DISORDER [None]
